FAERS Safety Report 6824968-9 (Version None)
Quarter: 2010Q3

REPORT INFORMATION
  Report Type: 
  Country: None (occurrence: None)
  Receive Date: 20100708
  Receipt Date: 20061211
  Transmission Date: 20110219
  Serious: No
  Sender: FDA-Public Use
  Company Number: US-PFIZER INC-2006153958

PATIENT
  Sex: Female
  Weight: 49.9 kg

DRUGS (5)
  1. CHANTIX [Suspect]
     Indication: SMOKING CESSATION THERAPY
     Dates: start: 20061207
  2. CELEXA [Concomitant]
  3. PROGESTERONE [Concomitant]
  4. ATENOLOL [Concomitant]
  5. TOPAMAX [Concomitant]

REACTIONS (3)
  - DYSGEUSIA [None]
  - FLATULENCE [None]
  - HYPERCHLORHYDRIA [None]
